FAERS Safety Report 4849356-6 (Version None)
Quarter: 2005Q4

REPORT INFORMATION
  Report Type: 
  Country: None (occurrence: None)
  Receive Date: 20051207
  Receipt Date: 20051203
  Transmission Date: 20060501
  Serious: Yes (Other)
  Sender: FDA-Public Use
  Company Number: 217407

PATIENT
  Sex: 0

DRUGS (1)
  1. AVASTIN [Suspect]

REACTIONS (3)
  - BLINDNESS UNILATERAL [None]
  - NEUROLOGICAL SYMPTOM [None]
  - PULMONARY EMBOLISM [None]
